FAERS Safety Report 14647657 (Version 1)
Quarter: 2018Q1

REPORT INFORMATION
  Report Type: Spontaneous
  Country: JP (occurrence: JP)
  Receive Date: 20180316
  Receipt Date: 20180316
  Transmission Date: 20180509
  Serious: Yes (Other)
  Sender: FDA-Public Use
  Company Number: JP-GLAXOSMITHKLINE-JP2018JPN040901

PATIENT
  Age: 46 Year
  Sex: Male

DRUGS (1)
  1. SERETIDE [Suspect]
     Active Substance: FLUTICASONE PROPIONATE\SALMETEROL XINAFOATE
     Dosage: UNK
     Route: 055

REACTIONS (5)
  - Arrhythmia [Unknown]
  - Asthma [Unknown]
  - Hypertension [Unknown]
  - Cardiac failure [Unknown]
  - Cardiac hypertrophy [Unknown]
